FAERS Safety Report 5622314-X (Version None)
Quarter: 2008Q1

REPORT INFORMATION
  Report Type: 
  Country: None (occurrence: None)
  Receive Date: 20080211
  Receipt Date: 20080201
  Transmission Date: 20080703
  Serious: Yes (Hospitalization, Other)
  Sender: FDA-Public Use
  Company Number: GB-ABBOTT-08P-167-0434298-00

PATIENT
  Age: 12 Year
  Sex: Female

DRUGS (3)
  1. VALPROATE SODIUM [Suspect]
     Indication: EPILEPSY
     Dosage: NOT REPORTED
  2. CARBAMAZEPINE [Suspect]
     Indication: EPILEPSY
     Dosage: NOT REPORTED
  3. CARBAMAZEPINE [Suspect]
     Dosage: NOT REPORTED

REACTIONS (4)
  - DRUG RASH WITH EOSINOPHILIA AND SYSTEMIC SYMPTOMS [None]
  - HEPATIC FAILURE [None]
  - MONONUCLEOSIS SYNDROME [None]
  - PYREXIA [None]
